FAERS Safety Report 8318077-X (Version None)
Quarter: 2012Q2

REPORT INFORMATION
  Report Type: 
  Country: None (occurrence: None)
  Receive Date: 20120427
  Receipt Date: 20120414
  Transmission Date: 20120825
  Serious: Yes (Hospitalization)
  Sender: FDA-Public Use
  Company Number: US-RANBAXY-2012US-55735

PATIENT
  Age: 74 Year
  Sex: Male

DRUGS (2)
  1. WARFARIN SODIUM [Interacting]
     Indication: ATRIAL FIBRILLATION
     Dosage: 2.5MG DAILY
     Route: 065
  2. ACETAMINOPHEN [Suspect]
     Indication: BACK PAIN
     Dosage: 500 MG, PRN
     Route: 065

REACTIONS (2)
  - HAEMATOMA [None]
  - DRUG INTERACTION [None]
